FAERS Safety Report 8925286 (Version 3)
Quarter: 2013Q1

REPORT INFORMATION
  Report Type: Spontaneous
  Country: US (occurrence: US)
  Receive Date: 20121126
  Receipt Date: 20130215
  Transmission Date: 20140127
  Serious: Yes (Other)
  Sender: FDA-Public Use
  Company Number: US-PFIZER INC-2012292222

PATIENT
  Sex: Female

DRUGS (4)
  1. LIPITOR [Suspect]
     Dosage: UNK
     Dates: start: 20121120, end: 20121120
  2. ANTIVERT [Suspect]
     Dosage: UNK
     Dates: start: 20121120, end: 20121120
  3. ZOLOFT [Suspect]
     Dosage: UNK
     Dates: start: 20121120, end: 20121120
  4. AVONEX [Suspect]
     Dosage: UNK

REACTIONS (1)
  - Malaise [Unknown]
